FAERS Safety Report 10087304 (Version 1)
Quarter: 2014Q2

REPORT INFORMATION
  Report Type: Spontaneous
  Country: FR (occurrence: FR)
  Receive Date: 20140418
  Receipt Date: 20140418
  Transmission Date: 20141212
  Serious: Yes (Hospitalization)
  Sender: FDA-Public Use
  Company Number: FR-B.I. PHARMACEUTICALS,INC./RIDGEFIELD-2014-BI-16902FF

PATIENT
  Age: 84 Year
  Sex: Female

DRUGS (8)
  1. PRADAXA [Suspect]
     Indication: PRODUCT USED FOR UNKNOWN INDICATION
     Dosage: 220 MG
     Route: 048
     Dates: end: 20130829
  2. VENLAFAXINE [Suspect]
     Indication: PRODUCT USED FOR UNKNOWN INDICATION
     Route: 048
  3. BISOCE [Concomitant]
     Route: 065
  4. KALEORID [Concomitant]
     Route: 065
  5. LEVOTHYROX [Concomitant]
     Route: 065
  6. FORLAX [Concomitant]
     Route: 065
  7. LASILIX [Concomitant]
     Route: 065
  8. SKENAN [Concomitant]
     Route: 065

REACTIONS (3)
  - Epilepsy [Recovered/Resolved]
  - Meningorrhagia [Recovered/Resolved with Sequelae]
  - Subdural haematoma [Recovered/Resolved with Sequelae]
